FAERS Safety Report 13241824 (Version 2)
Quarter: 2017Q1

REPORT INFORMATION
  Report Type: Spontaneous
  Country: US (occurrence: US)
  Receive Date: 20170217
  Receipt Date: 20170316
  Transmission Date: 20170428
  Serious: No
  Sender: FDA-Public Use
  Company Number: US-PFIZER INC-2017071949

PATIENT
  Age: 64 Year
  Sex: Female

DRUGS (1)
  1. SUTENT [Suspect]
     Active Substance: SUNITINIB MALATE
     Indication: RENAL CANCER
     Dosage: 50 MG, CYCLIC (DAILY FOR 14 DAYS AND OFF FOR 1 WEEK)
     Route: 048
     Dates: start: 201701

REACTIONS (3)
  - Oesophageal pain [Unknown]
  - Dyspepsia [Unknown]
  - Dysuria [Unknown]
